FAERS Safety Report 5334767-5 (Version None)
Quarter: 2007Q2

REPORT INFORMATION
  Report Type: 
  Country: None (occurrence: None)
  Receive Date: 20070525
  Receipt Date: 20070514
  Transmission Date: 20071010
  Serious: Yes (Hospitalization)
  Sender: FDA-Public Use
  Company Number: JP-ROCHE-491608

PATIENT
  Age: 4 Year
  Sex: Male
  Weight: 14 kg

DRUGS (5)
  1. TAMIFLU [Suspect]
     Dosage: FORM REPORTED AS DRY SYRUP.
     Route: 048
     Dates: start: 20070331, end: 20070331
  2. THEO-DUR [Concomitant]
     Route: 048
     Dates: start: 20070331
  3. ONON [Concomitant]
     Dosage: GENERIC REPORTED AS PRANLUKAST HYDRATE.
     Route: 048
     Dates: start: 20070331
  4. HOKUNALIN [Concomitant]
     Dosage: FORM: TAPE.
     Route: 061
     Dates: start: 20070331
  5. ACETAMINOPHEN [Concomitant]
     Dosage: DRUG NAME REPORTED AS CALSIL.
     Route: 054
     Dates: start: 20070331

REACTIONS (2)
  - ABNORMAL BEHAVIOUR [None]
  - CONVULSION [None]
